FAERS Safety Report 6797972-7 (Version None)
Quarter: 2010Q2

REPORT INFORMATION
  Report Type: 
  Country: None (occurrence: None)
  Receive Date: 20100623
  Receipt Date: 20091015
  Transmission Date: 20101027
  Serious: Yes (Hospitalization, Disabling)
  Sender: FDA-Public Use
  Company Number: APP200800439

PATIENT
  Age: 48 Year
  Sex: Male

DRUGS (7)
  1. SENSORCAINE [Suspect]
     Indication: MUSCULOSKELETAL PAIN
     Dosage: 30 ML, CONTINUOUS VIA PAIN PUMP
     Dates: start: 20060511
  2. BUPIVACAINE HYDROCHLORIDE AND EPINEPHRINE [Suspect]
     Indication: MUSCULOSKELETAL PAIN
     Dosage: CONTINUOUS VIA PAIN PUMP; 30 MG
     Dates: start: 20060511
  3. BUPIVACAINE HYDROCHLORIDE AND EPINEPHRINE [Suspect]
     Indication: MUSCULOSKELETAL PAIN
     Dosage: CONTINUOUS VIA PAIN PUMP; 30 MG
     Dates: start: 20060511
  4. BREG PAIN PUMP [Suspect]
     Indication: MUSCULOSKELETAL PAIN
     Dates: start: 20060511
  5. ANCEF [Concomitant]
  6. ACIPHEX [Concomitant]
  7. HYDROCODONE BITARTRATE [Concomitant]

REACTIONS (33)
  - ACTIVITIES OF DAILY LIVING IMPAIRED [None]
  - BACK PAIN [None]
  - BURSITIS [None]
  - CARPAL TUNNEL SYNDROME [None]
  - CHONDROLYSIS [None]
  - COMPLEX REGIONAL PAIN SYNDROME [None]
  - COMPRESSION FRACTURE [None]
  - EXTRAVASATION [None]
  - HYPOAESTHESIA [None]
  - IMPAIRED WORK ABILITY [None]
  - INCISION SITE COMPLICATION [None]
  - INFECTION [None]
  - INSOMNIA [None]
  - JOINT LOCK [None]
  - JOINT RANGE OF MOTION DECREASED [None]
  - MUSCULOSKELETAL PAIN [None]
  - MUSCULOSKELETAL STIFFNESS [None]
  - OEDEMA PERIPHERAL [None]
  - OSTEOARTHRITIS [None]
  - OSTEONECROSIS [None]
  - PAIN [None]
  - PAIN IN EXTREMITY [None]
  - PYREXIA [None]
  - ROAD TRAFFIC ACCIDENT [None]
  - ROTATOR CUFF SYNDROME [None]
  - SCAB [None]
  - SENSORY DISTURBANCE [None]
  - SEPSIS [None]
  - SKULL FRACTURE [None]
  - STAPHYLOCOCCAL INFECTION [None]
  - SYNOVITIS [None]
  - UPPER LIMB FRACTURE [None]
  - VIRAL INFECTION [None]
